FAERS Safety Report 9201500 (Version 1)
Quarter: 2013Q2

REPORT INFORMATION
  Report Type: Spontaneous
  Country: US (occurrence: US)
  Receive Date: 20130401
  Receipt Date: 20130401
  Transmission Date: 20140414
  Serious: Yes (Hospitalization)
  Sender: FDA-Public Use
  Company Number: US-BAYER-2013-036529

PATIENT
  Age: 26 Year
  Sex: Female

DRUGS (14)
  1. OCELLA [Suspect]
  2. YASMIN [Suspect]
  3. PROAIR HFA [Concomitant]
     Dosage: 90 MCG/24HR, UNK
  4. UNCODEABLE ^UNCLASSIFIABLE^ [Concomitant]
     Dosage: 108 MCG/ACT,2 PUFFS FOUR TIMES DAILY AS NEEDED INHALATION
  5. ALBUTEROL SULFATE [Concomitant]
     Dosage: 2.5 MG/3ML 0.083% IN NEBULIZER, ONE UNIT DOSEVIA NEBULIZER AS NEEDE INHALATION
  6. ADVAIR [Concomitant]
     Dosage: 250-50 DISKUS, 1 1 INHALATION TWISE A DAY
     Route: 048
  7. FLUTICASONE PROPIONATE [Concomitant]
     Dosage: 50 MCG/24HR, UNK
     Route: 045
  8. TOPAMAX [Concomitant]
  9. LIPITOR [Concomitant]
  10. ATIVAN [Concomitant]
  11. ATORVASTATIN [Concomitant]
  12. INSULIN [Concomitant]
  13. LIDOCAIN [Concomitant]
  14. VERSED [Concomitant]

REACTIONS (2)
  - Cerebrovascular accident [None]
  - Thalamic infarction [None]
